FAERS Safety Report 5879948-7 (Version None)
Quarter: 2008Q3

REPORT INFORMATION
  Report Type: 
  Country: None (occurrence: None)
  Receive Date: 20080912
  Receipt Date: 20080903
  Transmission Date: 20090109
  Serious: Yes (Death)
  Sender: FDA-Public Use
  Company Number: US-AMGEN-QUU286119

PATIENT
  Sex: Male
  Weight: 68.6 kg

DRUGS (4)
  1. ARANESP [Suspect]
     Indication: ANAEMIA OF MALIGNANT DISEASE
     Route: 058
     Dates: start: 20070410, end: 20071106
  2. PROCRIT [Suspect]
     Indication: ANAEMIA OF MALIGNANT DISEASE
     Dates: start: 20080111, end: 20080111
  3. NEULASTA [Suspect]
     Indication: CHEMOTHERAPY
     Route: 058
     Dates: start: 20070411, end: 20070726
  4. UNSPECIFIED ANTINEOPLASTIC AGENT [Concomitant]
     Dates: start: 20070401, end: 20070701

REACTIONS (2)
  - LUNG NEOPLASM MALIGNANT [None]
  - METASTASES TO BONE [None]
